FAERS Safety Report 12453474 (Version 1)
Quarter: 2016Q2

REPORT INFORMATION
  Report Type: Spontaneous
  Country: US (occurrence: US)
  Receive Date: 20160609
  Receipt Date: 20160609
  Transmission Date: 20160815
  Serious: No
  Sender: FDA-Public Use
  Company Number: ALCN2016US003799

PATIENT
  Sex: Female

DRUGS (1)
  1. TOBRAMYCIN AND DEXAMETHASONE [Suspect]
     Active Substance: DEXAMETHASONE\TOBRAMYCIN
     Indication: EYE SWELLING
     Dosage: UNK
     Route: 047

REACTIONS (4)
  - Eye swelling [Unknown]
  - Eye pain [Unknown]
  - Condition aggravated [Unknown]
  - Drug ineffective [Unknown]
